FAERS Safety Report 4604868-5 (Version None)
Quarter: 2005Q1

REPORT INFORMATION
  Report Type: 
  Country: None (occurrence: None)
  Receive Date: 20050310
  Receipt Date: 20050310
  Transmission Date: 20050727
  Serious: Yes (Disabling, Other)
  Sender: FDA-Public Use
  Company Number: None

PATIENT
  Sex: Male
  Weight: 82.1011 kg

DRUGS (2)
  1. TRAZODONE 100 MG SIDMAK [Suspect]
     Indication: DEPRESSION
     Dosage: 150 MG NIGHTLY OTHER
     Route: 050
     Dates: start: 20000103, end: 20050307
  2. TRAZODONE 100NG PLIVA [Suspect]

REACTIONS (2)
  - ANXIETY [None]
  - DEPRESSION [None]
